FAERS Safety Report 10146777 (Version 2)
Quarter: 2014Q2

REPORT INFORMATION
  Report Type: Spontaneous
  Country: IT (occurrence: None)
  Receive Date: 20140429
  Receipt Date: 20140512
  Transmission Date: 20141212
  Serious: Yes (Other)
  Sender: FDA-Public Use
  Company Number: AUR-APL-2014-05057

PATIENT
  Age: 32 Year
  Sex: Female

DRUGS (1)
  1. LEVOFLOXACIN [Suspect]
     Indication: URINARY TRACT INFECTION
     Dosage: 1 DOSAGE FORMS, 1 D
     Route: 048
     Dates: start: 20140407, end: 20140413

REACTIONS (4)
  - Hallucination [None]
  - Paraesthesia [None]
  - Psychomotor hyperactivity [None]
  - Tremor [None]
